FAERS Safety Report 6612157-2 (Version None)
Quarter: 2010Q1

REPORT INFORMATION
  Report Type: 
  Country: None (occurrence: None)
  Receive Date: 20100303
  Receipt Date: 20100222
  Transmission Date: 20100710
  Serious: Yes (Other)
  Sender: FDA-Public Use
  Company Number: US-AMGEN-QUU393217

PATIENT
  Sex: Female

DRUGS (5)
  1. NPLATE [Suspect]
     Indication: IDIOPATHIC THROMBOCYTOPENIC PURPURA
     Dates: start: 20090116, end: 20100114
  2. AZITHROMYC [Concomitant]
  3. PROMETHAZINE W/ CODEINE [Concomitant]
  4. ZANTAC [Concomitant]
  5. CLOPIDOGREL [Concomitant]

REACTIONS (5)
  - ACUTE MYOCARDIAL INFARCTION [None]
  - BLOOD PRESSURE INCREASED [None]
  - CORONARY ARTERY THROMBOSIS [None]
  - HYPERCOAGULATION [None]
  - PLATELET COUNT DECREASED [None]
